FAERS Safety Report 4737418-3 (Version None)
Quarter: 2005Q3

REPORT INFORMATION
  Report Type: 
  Country: None (occurrence: None)
  Receive Date: 20050805
  Receipt Date: 20050722
  Transmission Date: 20060218
  Serious: Yes (Hospitalization)
  Sender: FDA-Public Use
  Company Number: US_0507120165

PATIENT
  Age: 45 Year
  Sex: Male
  Weight: 142 kg

DRUGS (1)
  1. OLANZAPINE [Suspect]
     Indication: SCHIZOPHRENIA
     Dosage: 210 MG
     Dates: start: 20050215, end: 20050718

REACTIONS (2)
  - BRONCHITIS [None]
  - PARANOIA [None]
